FAERS Safety Report 15291374 (Version 4)
Quarter: 2020Q3

REPORT INFORMATION
  Report Type: Report from Study
  Country: US (occurrence: US)
  Receive Date: 20180817
  Receipt Date: 20181106
  Transmission Date: 20201104
  Serious: Yes (Hospitalization)
  Sender: FDA-Public Use
  Company Number: US-PFIZER INC-2018327834

PATIENT
  Age: 47 Year
  Sex: Female
  Weight: 159.7 kg

DRUGS (25)
  1. ONDANSETRON [Concomitant]
     Active Substance: ONDANSETRON
     Indication: VOMITING
  2. POLYETHYLENE GLYCOL PACKET [Concomitant]
     Indication: CONSTIPATION
     Dosage: 17 G, AS NEEDED QD
     Route: 048
     Dates: start: 20170116
  3. PROCHLORPERAZINE. [Concomitant]
     Active Substance: PROCHLORPERAZINE
     Indication: NAUSEA
     Dosage: 10 MG, 3X/DAY (Q8H)
     Route: 048
     Dates: start: 20161219, end: 20170523
  4. PEGFILGRASTIM [Concomitant]
     Active Substance: PEGFILGRASTIM
     Indication: INFECTION PROPHYLAXIS
     Dosage: 6 MG, UNK
     Route: 030
     Dates: start: 20170104, end: 20170509
  5. LEVOFLOXACIN. [Concomitant]
     Active Substance: LEVOFLOXACIN
     Indication: INFECTION
     Dosage: 750 MG, 1X/DAY FOR 5 DAYS
     Route: 048
     Dates: start: 20170402, end: 20170405
  6. PSEUDOEPHEDRINE?IBUPROFEN [Concomitant]
     Indication: NASAL CONGESTION
     Dosage: 1 TABLET, AS NEEDED (EVERY 6 HOURS)
     Route: 048
     Dates: start: 20170327
  7. PROCHLORPERAZINE. [Concomitant]
     Active Substance: PROCHLORPERAZINE
     Indication: VOMITING
  8. IRINOTECAN HCL [Suspect]
     Active Substance: IRINOTECAN HYDROCHLORIDE
     Indication: BREAST CANCER
     Dosage: 46 MG, CYCLIC EVERY 2 WEEKS
     Route: 042
     Dates: start: 20170104, end: 20170317
  9. ACETAMINOPHEN. [Concomitant]
     Active Substance: ACETAMINOPHEN
     Indication: HEADACHE
  10. IBUPROFEN. [Concomitant]
     Active Substance: IBUPROFEN
     Indication: PAIN
     Dosage: 200 MG, AS NEEDED
     Route: 048
     Dates: start: 20170220
  11. OMEPRAZOLE. [Concomitant]
     Active Substance: OMEPRAZOLE
     Indication: ABDOMINAL PAIN UPPER
     Dosage: 20 MG, 1X/DAY (AM BEFORE BREAKFAST)
     Route: 048
     Dates: start: 20170220
  12. ACETAMINOPHEN. [Concomitant]
     Active Substance: ACETAMINOPHEN
     Indication: PAIN
     Dosage: 650 MG, AS NEEDED
     Route: 048
     Dates: start: 20170403
  13. ACETAMINOPHEN?CODEINE [Concomitant]
     Active Substance: ACETAMINOPHEN\CODEINE PHOSPHATE
     Indication: PAIN
     Dosage: [CODEINE 30 MG]/[PARACETAMOL 300 MG], 1?2 TABLETS, AS NEEDED Q4H
     Route: 048
     Dates: start: 20170123
  14. CHOLECALCIFEROL [Concomitant]
     Active Substance: CHOLECALCIFEROL
     Indication: VITAMIN D DEFICIENCY
     Dosage: 2000 IU UNITS, 1X/DAY
     Route: 048
     Dates: start: 20170227
  15. LORATADINE. [Concomitant]
     Active Substance: LORATADINE
     Indication: BONE PAIN
     Dosage: 10 MG, 1X/DAY
     Route: 048
     Dates: start: 20170403
  16. DEXAMETHASONE. [Concomitant]
     Active Substance: DEXAMETHASONE
     Indication: NAUSEA
     Dosage: 10 MG, UNK
     Route: 042
     Dates: start: 20170104, end: 20170508
  17. GUAIFENESIN?DEXTROMETHORPHAN [Concomitant]
     Indication: COUGH
     Dosage: 200 MG, EVERY 4 HRS
     Route: 048
     Dates: start: 20170404, end: 20170405
  18. ALUMINIUM HYDROXIDE;DIPHENHYDRAMINE;LIDOCAINE;MAGNESIUM HYDROXIDE;SIME [Concomitant]
     Indication: MUCOSAL INFLAMMATION
     Dosage: 200 25?400?40 MG?30 ML
     Route: 048
     Dates: start: 20170403, end: 20170405
  19. DOXORUBICIN HCL [Suspect]
     Active Substance: DOXORUBICIN HYDROCHLORIDE
     Indication: BREAST CANCER
     Dosage: 110 MG, CYCLIC Q2W
     Route: 042
     Dates: start: 20170327, end: 20170508
  20. CYCLOPHOSPHAMIDE. [Suspect]
     Active Substance: CYCLOPHOSPHAMIDE
     Indication: BREAST CANCER
     Dosage: 1104 MG, CYCLIC Q2W
     Route: 042
     Dates: start: 20170327, end: 20170508
  21. CACO3 [Concomitant]
     Indication: SUPPLEMENTATION THERAPY
     Dosage: 1 DF (TABLET), AS NEEDED
     Route: 048
     Dates: start: 20170220
  22. DOCUSATE SODIUM. [Concomitant]
     Active Substance: DOCUSATE SODIUM
     Indication: CONSTIPATION
     Dosage: 2 CAPSULES, 2X/DAY
     Route: 048
     Dates: start: 20170109
  23. ONDANSETRON [Concomitant]
     Active Substance: ONDANSETRON
     Indication: NAUSEA
     Dosage: 8 MG, AS NEEDED Q8H
     Route: 048
     Dates: start: 20161219, end: 20170523
  24. LIDOCAINE?PRILOCAINE [Concomitant]
     Active Substance: LIDOCAINE\PRILOCAINE
     Dosage: APPLY ONE THICK LAYER TO PORT SITE 30?60 MINUTES PRIOR TO PORT ACCESS
     Route: 061
     Dates: start: 20161219
  25. TALAZOPARIB. [Suspect]
     Active Substance: TALAZOPARIB
     Indication: BREAST CANCER
     Dosage: 1 MG, 1X/DAY
     Route: 048
     Dates: start: 20170104, end: 20170317

REACTIONS (2)
  - Thrombocytopenia [Recovered/Resolved]
  - Febrile neutropenia [Recovered/Resolved]

NARRATIVE: CASE EVENT DATE: 20170403
